FAERS Safety Report 7649049-6 (Version None)
Quarter: 2011Q3

REPORT INFORMATION
  Report Type: 
  Country: None (occurrence: None)
  Receive Date: 20110726
  Receipt Date: 20110720
  Transmission Date: 20111222
  Serious: Yes (Other)
  Sender: FDA-Public Use
  Company Number: 2011S1001073

PATIENT
  Age: 41 Year
  Sex: Male

DRUGS (1)
  1. LIVALO [Suspect]
     Indication: HYPERCHOLESTEROLAEMIA
     Dosage: 2 MG;1X/PO
     Route: 048
     Dates: start: 20100601, end: 20100701

REACTIONS (1)
  - LIVER DISORDER [None]
